FAERS Safety Report 11828903 (Version 3)
Quarter: 2016Q4

REPORT INFORMATION
  Report Type: Spontaneous
  Country: US (occurrence: US)
  Receive Date: 20151211
  Receipt Date: 20161019
  Transmission Date: 20170206
  Serious: Yes (Other)
  Sender: FDA-Public Use
  Company Number: US-CELGENEUS-USA-2015116962

PATIENT
  Sex: Male
  Weight: 62.65 kg

DRUGS (1)
  1. OTEZLA [Suspect]
     Active Substance: APREMILAST
     Indication: PSORIASIS
     Dosage: 60 MILLIGRAM
     Route: 048

REACTIONS (4)
  - Weight fluctuation [Unknown]
  - Abdominal pain [Unknown]
  - Eating disorder [Unknown]
  - Drug ineffective [Unknown]
